FAERS Safety Report 14572917 (Version 1)
Quarter: 2018Q1

REPORT INFORMATION
  Report Type: Spontaneous
  Country: US (occurrence: US)
  Receive Date: 20180226
  Receipt Date: 20180226
  Transmission Date: 20180509
  Serious: No
  Sender: FDA-Public Use
  Company Number: US-JEROME STEVENS PHARMACEUTICALS, INC.-2042564

PATIENT
  Sex: Female
  Weight: 54.55 kg

DRUGS (14)
  1. HUMIRA [Concomitant]
     Active Substance: ADALIMUMAB
  2. KRILL OIL [Concomitant]
     Active Substance: DIETARY SUPPLEMENT
  3. MAGNESIUM [Concomitant]
     Active Substance: MAGNESIUM
  4. UNITHROID [Suspect]
     Active Substance: LEVOTHYROXINE SODIUM
     Indication: HYPOTHYROIDISM
     Dates: start: 2016, end: 2016
  5. DILAUDID [Concomitant]
     Active Substance: HYDROMORPHONE HYDROCHLORIDE
  6. BOSWELLIA EXTRACT [Concomitant]
  7. POTASSIUM [Concomitant]
     Active Substance: POTASSIUM
  8. VITAMIN B [Concomitant]
     Active Substance: VITAMIN B
  9. EVENING PRIMROSE [Concomitant]
  10. CAT^S CLAW [Concomitant]
     Active Substance: CAT^S CLAW
  11. VITAMIN D3DIETARY SUPPLEMEN DIETARY SUPPLEMENT [Concomitant]
     Active Substance: ALPHA-TOCOPHEROL\CHOLECALCIFEROL
  12. CALCIUM [Concomitant]
     Active Substance: CALCIUM
  13. METHOTREXATE. [Concomitant]
     Active Substance: METHOTREXATE
  14. TRAMADOL. [Concomitant]
     Active Substance: TRAMADOL

REACTIONS (3)
  - Psychomotor hyperactivity [Unknown]
  - Insomnia [Unknown]
  - Alopecia [Unknown]

NARRATIVE: CASE EVENT DATE: 2016
